FAERS Safety Report 8046885-1 (Version None)
Quarter: 2012Q1

REPORT INFORMATION
  Report Type: 
  Country: None (occurrence: None)
  Receive Date: 20120116
  Receipt Date: 20120110
  Transmission Date: 20120608
  Serious: Yes (Other)
  Sender: FDA-Public Use
  Company Number: FR-JNJFOC-20111011883

PATIENT
  Sex: Male

DRUGS (4)
  1. PREZISTA [Suspect]
     Indication: HIV TEST POSITIVE
     Route: 048
     Dates: start: 20110809, end: 20110920
  2. REYATAZ [Suspect]
     Indication: HIV TEST POSITIVE
     Route: 065
  3. TRUVADA [Suspect]
     Indication: HIV TEST POSITIVE
     Route: 048
     Dates: start: 20110708, end: 20110920
  4. NORVIR [Suspect]
     Indication: HIV TEST POSITIVE
     Dosage: RITONAVIR INCLUDED IN COMBIVIR*, SO NOT DISCONTINUED
     Route: 048

REACTIONS (4)
  - ROTATOR CUFF SYNDROME [None]
  - EMOTIONAL DISORDER [None]
  - TENOSYNOVITIS [None]
  - SOMNOLENCE [None]
